FAERS Safety Report 9425861 (Version 1)
Quarter: 2013Q3

REPORT INFORMATION
  Report Type: Spontaneous
  Country: GB (occurrence: GB)
  Receive Date: 20130729
  Receipt Date: 20130729
  Transmission Date: 20140515
  Serious: Yes (Hospitalization)
  Sender: FDA-Public Use
  Company Number: GB-OTSUKA-EU-2013-10180

PATIENT
  Sex: Female

DRUGS (8)
  1. SAMSCA [Suspect]
     Indication: HYPONATRAEMIA
     Dosage: 15 MG MILLIGRAM(S), QD
     Route: 048
     Dates: start: 201305, end: 201306
  2. SAMSCA [Suspect]
     Dosage: 15 MG MILLIGRAM(S), QD
     Dates: start: 201306
  3. DEMECLOCYCLINE [Concomitant]
  4. CARBOPLATINE [Concomitant]
  5. ETOPOSIDE [Concomitant]
  6. CYCLOPHOSPHAMID [Concomitant]
     Indication: SMALL CELL LUNG CANCER
  7. ADRIAMYCIN [Concomitant]
     Indication: SMALL CELL LUNG CANCER
  8. VINCRISTINE [Concomitant]
     Indication: SMALL CELL LUNG CANCER

REACTIONS (4)
  - Pneumonia [Recovered/Resolved]
  - Dizziness [Recovered/Resolved]
  - Asthenia [Recovered/Resolved]
  - Hypernatraemia [Recovered/Resolved]
